FAERS Safety Report 10557333 (Version 2)
Quarter: 2014Q4

REPORT INFORMATION
  Report Type: Spontaneous
  Country: CN (occurrence: CN)
  Receive Date: 20141031
  Receipt Date: 20141205
  Transmission Date: 20150529
  Serious: Yes (Other)
  Sender: FDA-Public Use
  Company Number: CN-JNJFOC-20141016480

PATIENT
  Age: 6 Year
  Sex: Female
  Weight: 21 kg

DRUGS (2)
  1. TYLENOL CHILDRENS SUSPENSION LIQUID [Suspect]
     Active Substance: ACETAMINOPHEN
     Indication: PYREXIA
     Route: 048
     Dates: start: 20140520, end: 20140524
  2. MEZLOCILLIN SODIUM [Suspect]
     Active Substance: MEZLOCILLIN SODIUM
     Indication: BRONCHITIS
     Route: 042
     Dates: start: 20140520, end: 20140523

REACTIONS (3)
  - Pain in extremity [Unknown]
  - Cough [Recovered/Resolved]
  - Leukopenia [Recovered/Resolved]

NARRATIVE: CASE EVENT DATE: 20140522
